FAERS Safety Report 6375377-0 (Version None)
Quarter: 2009Q3

REPORT INFORMATION
  Report Type: 
  Country: None (occurrence: None)
  Receive Date: 20090924
  Receipt Date: 20090913
  Transmission Date: 20100115
  Serious: Yes (Hospitalization, Other)
  Sender: FDA-Public Use
  Company Number: PHHO2009US06035

PATIENT
  Sex: Male
  Weight: 100 kg

DRUGS (2)
  1. RAD 666 RAD+TAB [Suspect]
     Indication: METASTATIC RENAL CELL CARCINOMA
     Dosage: 10 MG
     Route: 048
     Dates: start: 20090205, end: 20090507
  2. RAD 666 RAD+TAB [Suspect]
     Dosage: 10 MG
     Route: 048
     Dates: start: 20090523

REACTIONS (21)
  - ABDOMINAL PAIN [None]
  - ADRENAL INSUFFICIENCY [None]
  - ASCITES [None]
  - ATELECTASIS [None]
  - BLOOD CREATININE INCREASED [None]
  - BRADYCARDIA [None]
  - CARDIOMEGALY [None]
  - DEHYDRATION [None]
  - HELICOBACTER GASTRITIS [None]
  - HYPERURICAEMIA [None]
  - HYPONATRAEMIA [None]
  - HYPOPERFUSION [None]
  - HYPOTENSION [None]
  - HYPOXIA [None]
  - IRON DEFICIENCY [None]
  - LUNG INFILTRATION [None]
  - MALIGNANT NEOPLASM PROGRESSION [None]
  - METASTATIC NEOPLASM [None]
  - PLEURAL EFFUSION [None]
  - RENAL FAILURE ACUTE [None]
  - THROMBOCYTOPENIA [None]
